FAERS Safety Report 8032637-5 (Version None)
Quarter: 2012Q1

REPORT INFORMATION
  Report Type: 
  Country: None (occurrence: None)
  Receive Date: 20120110
  Receipt Date: 20110812
  Transmission Date: 20120608
  Serious: No
  Sender: FDA-Public Use
  Company Number: US-COVIDIEN/TYCO HEALTHCARE/MALLINCKRODT-T201101229

PATIENT
  Sex: Female

DRUGS (1)
  1. OPTIRAY 160 [Suspect]
     Dosage: UNK
     Dates: start: 20110608, end: 20110608

REACTIONS (8)
  - DIZZINESS [None]
  - ERYTHEMA [None]
  - SWELLING [None]
  - PRODUCT QUALITY ISSUE [None]
  - ACCIDENTAL EXPOSURE [None]
  - SYRINGE ISSUE [None]
  - INJURY [None]
  - CONTUSION [None]
